FAERS Safety Report 12089559 (Version 2)
Quarter: 2016Q1

REPORT INFORMATION
  Report Type: Spontaneous
  Country: US (occurrence: US)
  Receive Date: 20160218
  Receipt Date: 20160222
  Transmission Date: 20160526
  Serious: No
  Sender: FDA-Public Use
  Company Number: US-PFIZER INC-2016102229

PATIENT
  Age: 83 Year
  Sex: Male
  Weight: 68.4 kg

DRUGS (1)
  1. GABAPENTIN. [Suspect]
     Active Substance: GABAPENTIN

REACTIONS (1)
  - Drug ineffective [Unknown]
